FAERS Safety Report 11828406 (Version 1)
Quarter: 2015Q4

REPORT INFORMATION
  Report Type: Spontaneous
  Country: US (occurrence: US)
  Receive Date: 20151211
  Receipt Date: 20151211
  Transmission Date: 20160305
  Serious: No
  Sender: FDA-Public Use
  Company Number: US-BAUSCH-BL-2015-003391

PATIENT
  Age: 55 Year
  Sex: Female
  Weight: 52.21 kg

DRUGS (3)
  1. ALLEGRA [Suspect]
     Active Substance: FEXOFENADINE HYDROCHLORIDE
     Indication: PRODUCT USED FOR UNKNOWN INDICATION
  2. ALEVE [Suspect]
     Active Substance: NAPROXEN SODIUM
     Indication: PRODUCT USED FOR UNKNOWN INDICATION
  3. XENAZINE [Suspect]
     Active Substance: TETRABENAZINE
     Indication: HUNTINGTON^S DISEASE
     Route: 048
     Dates: start: 20150206

REACTIONS (22)
  - Pain [Recovered/Resolved]
  - Agitation [Recovering/Resolving]
  - Arthropathy [Unknown]
  - Treatment noncompliance [Unknown]
  - Impatience [Not Recovered/Not Resolved]
  - Restlessness [Recovering/Resolving]
  - Neck pain [Unknown]
  - Mood altered [Recovering/Resolving]
  - Lethargy [Not Recovered/Not Resolved]
  - Irritability [Recovering/Resolving]
  - Fall [Unknown]
  - Decompression sickness [Unknown]
  - Muscular weakness [Unknown]
  - Movement disorder [Not Recovered/Not Resolved]
  - Contusion [Recovered/Resolved]
  - Drug administration error [Unknown]
  - Drug ineffective [Not Recovered/Not Resolved]
  - Somnolence [Recovering/Resolving]
  - Fatigue [Recovering/Resolving]
  - Drug administration error [Unknown]
  - Joint stiffness [Recovering/Resolving]
  - Sciatica [Unknown]

NARRATIVE: CASE EVENT DATE: 2015
